FAERS Safety Report 7141566-0 (Version None)
Quarter: 2010Q4

REPORT INFORMATION
  Report Type: 
  Country: None (occurrence: None)
  Receive Date: 20101207
  Receipt Date: 20101123
  Transmission Date: 20110411
  Serious: Yes (Hospitalization)
  Sender: FDA-Public Use
  Company Number: PHFR2010GB04306

PATIENT
  Sex: Female

DRUGS (9)
  1. CLOZARIL [Suspect]
     Indication: SCHIZOPHRENIA
     Dosage: UNK
     Route: 048
     Dates: start: 19990318
  2. CLOZARIL [Suspect]
     Dosage: 500 MG, QD
     Route: 048
     Dates: start: 20101028
  3. VENLAFAXINE [Concomitant]
     Dosage: 150 MG, UNK
     Route: 048
     Dates: start: 20101018
  4. DIAZEPAM [Concomitant]
     Dosage: 10 MG, UNK
     Route: 048
     Dates: start: 20101018
  5. LANSOPRAZOLE [Concomitant]
     Dosage: 30 MG, UNK
     Route: 048
     Dates: start: 20101022
  6. BISACODYL [Concomitant]
     Dosage: UNK
     Route: 048
     Dates: start: 20101022
  7. HYOSCINE HBR HYT [Concomitant]
     Dosage: 300 UG, UNK
     Route: 048
     Dates: start: 20101022
  8. HYOSCINE HBR HYT [Concomitant]
     Dosage: 600 UG, UNK
  9. SENNA [Concomitant]
     Dosage: 15 MG, UNK
     Route: 048
     Dates: start: 20101022

REACTIONS (2)
  - PNEUMONIA ASPIRATION [None]
  - SUICIDE ATTEMPT [None]
